FAERS Safety Report 9118970 (Version 2)
Quarter: 2013Q1

REPORT INFORMATION
  Report Type: Spontaneous
  Country: JP (occurrence: JP)
  Receive Date: 20130226
  Receipt Date: 20130314
  Transmission Date: 20140127
  Serious: Yes (Other)
  Sender: FDA-Public Use
  Company Number: PHHY2013JP018506

PATIENT
  Age: 85 Year
  Sex: Female

DRUGS (4)
  1. LAMISIL [Suspect]
     Indication: ONYCHOMYCOSIS
     Dosage: UNK UKN, UNK
     Route: 048
     Dates: end: 20130212
  2. UNISIA [Suspect]
     Dosage: UNK UKN, UNK
     Route: 048
     Dates: start: 20130114, end: 20130212
  3. MEMARY [Suspect]
     Dosage: 20 MG, QD
     Route: 048
     Dates: start: 20130114, end: 20130212
  4. ARICEPT [Suspect]
     Dosage: 5 MG, QD
     Route: 048
     Dates: start: 20130114, end: 20130212

REACTIONS (2)
  - Urinary bladder haemorrhage [Recovered/Resolved]
  - Haematuria [Unknown]
